FAERS Safety Report 8680915 (Version 2)
Quarter: 2015Q1

REPORT INFORMATION
  Report Type: Report from Study
  Country: US (occurrence: US)
  Receive Date: 20120829
  Receipt Date: 20150204
  Transmission Date: 20150721
  Serious: Yes (Hospitalization)
  Sender: FDA-Public Use
  Company Number: US-ROCHE-1089803

PATIENT
  Age: 7 Year
  Sex: Male
  Weight: 48.6 kg

DRUGS (8)
  1. ADVAIR HFA [Concomitant]
     Active Substance: FLUTICASONE PROPIONATE\SALMETEROL XINAFOATE
  2. ZYRTEC [Concomitant]
     Active Substance: CETIRIZINE HYDROCHLORIDE
  3. XOLAIR [Suspect]
     Active Substance: OMALIZUMAB
     Indication: RHINITIS ALLERGIC
  4. XOLAIR [Suspect]
     Active Substance: OMALIZUMAB
     Indication: ASTHMA
     Route: 058
  5. PREVACID [Concomitant]
     Active Substance: LANSOPRAZOLE
  6. SOLU-MEDROL [Concomitant]
     Active Substance: METHYLPREDNISOLONE SODIUM SUCCINATE
  7. OXYGEN. [Concomitant]
     Active Substance: OXYGEN
  8. XOPENEX [Concomitant]
     Active Substance: LEVALBUTEROL HYDROCHLORIDE

REACTIONS (9)
  - Eczema [Recovering/Resolving]
  - Tachypnoea [Unknown]
  - Urticaria [Unknown]
  - Malaise [Unknown]
  - Wheezing [Unknown]
  - Tachycardia [Unknown]
  - Asthma [Unknown]
  - Status asthmaticus [Unknown]
  - Cough [Unknown]

NARRATIVE: CASE EVENT DATE: 20080410
